FAERS Safety Report 11650979 (Version 16)
Quarter: 2016Q4

REPORT INFORMATION
  Report Type: Report from Study
  Country: CA (occurrence: CA)
  Receive Date: 20151021
  Receipt Date: 20161229
  Transmission Date: 20170206
  Serious: Yes (Hospitalization, Other)
  Sender: FDA-Public Use
  Company Number: CA-TAKEDA-2015TUS014449

PATIENT
  Age: 35 Year
  Sex: Female

DRUGS (17)
  1. VEDOLIZUMAB [Suspect]
     Active Substance: VEDOLIZUMAB
     Indication: CROHN^S DISEASE
     Dosage: 300 MG, UNK
     Route: 042
     Dates: start: 20150702
  2. DEXILANT [Suspect]
     Active Substance: DEXLANSOPRAZOLE
     Indication: PRODUCT USED FOR UNKNOWN INDICATION
     Dosage: 60 MG, QD
     Route: 065
  3. GLUMETZA [Concomitant]
     Active Substance: METFORMIN HYDROCHLORIDE
     Dosage: 500 MG, QD
  4. ALOPURINOL [Concomitant]
     Active Substance: ALLOPURINOL
     Dosage: UNK, BID
  5. CALCIUM [Concomitant]
     Active Substance: CALCIUM
     Dosage: 500 MG, QD
  6. ONDANSETRON [Concomitant]
     Active Substance: ONDANSETRON
     Dosage: 8 MG, QD
  7. PREDNISONE. [Concomitant]
     Active Substance: PREDNISONE
     Dosage: 35 MG, QD
  8. PLAQUENIL                          /00072602/ [Concomitant]
     Active Substance: HYDROXYCHLOROQUINE DIPHOSPHATE
     Dosage: 200 MG, BID
  9. VICTOZA [Concomitant]
     Active Substance: LIRAGLUTIDE
     Dosage: UNK
  10. SYNTHROID [Concomitant]
     Active Substance: LEVOTHYROXINE SODIUM
     Dosage: 0.1 MG, QD
  11. SULFATRIM [Concomitant]
     Active Substance: SULFAMETHOXAZOLE\TRIMETHOPRIM
     Dosage: 800 MG, 3/WEEK
  12. MYLAN BUPROPION - XL [Concomitant]
     Dosage: 300 MG, UNK
  13. IMURAN [Concomitant]
     Active Substance: AZATHIOPRINE
     Dosage: 50 MG, QD
  14. APO-HYDROXYQUINE [Concomitant]
     Active Substance: HYDROXYCHLOROQUINE SULFATE
     Dosage: 200 MG, BID
     Dates: start: 2009
  15. DIAMICRON [Concomitant]
     Active Substance: GLICLAZIDE
     Dosage: 30 MG, QD
  16. MORPHINE [Concomitant]
     Active Substance: MORPHINE
     Dosage: 15 MG, UNK
  17. MORPHINE [Concomitant]
     Active Substance: MORPHINE
     Dosage: 15 MG, Q3HR

REACTIONS (27)
  - Abasia [Unknown]
  - Abdominal pain [Unknown]
  - Anal abscess [Unknown]
  - Hypoaesthesia [Unknown]
  - Pyelonephritis [Unknown]
  - Poor venous access [Unknown]
  - Vision blurred [Unknown]
  - Haemorrhage [Unknown]
  - Wound complication [Unknown]
  - Drug ineffective [Unknown]
  - Back pain [Unknown]
  - Stoma site haemorrhage [Unknown]
  - Pyoderma gangrenosum [Not Recovered/Not Resolved]
  - Faeces discoloured [Unknown]
  - Pyrexia [Unknown]
  - Paraesthesia [Unknown]
  - Vomiting [Unknown]
  - Off label use [Unknown]
  - Anal fistula [Unknown]
  - Sensory loss [Unknown]
  - Weight decreased [Unknown]
  - Arthritis [Unknown]
  - Abdominal pain [Unknown]
  - Hypoaesthesia [Unknown]
  - Necrotising fasciitis [Unknown]
  - Rectal haemorrhage [Unknown]
  - Rectal abscess [Unknown]

NARRATIVE: CASE EVENT DATE: 2015
